FAERS Safety Report 5594207-8 (Version None)
Quarter: 2008Q1

REPORT INFORMATION
  Report Type: 
  Country: None (occurrence: None)
  Receive Date: 20080115
  Receipt Date: 20071207
  Transmission Date: 20080703
  Serious: Yes (Other)
  Sender: FDA-Public Use
  Company Number: S07-GER-06122-01

PATIENT
  Age: 88 Year
  Sex: Female
  Weight: 61.7 kg

DRUGS (7)
  1. MEMANTINE HCL [Suspect]
     Indication: DEMENTIA
     Dosage: 10 MG BID PO
     Route: 048
     Dates: start: 20050101, end: 20070101
  2. LISINOPRIL [Concomitant]
  3. PANTOZOL (PANTOPRAZOLE SODIUM) [Concomitant]
  4. DICLOFENAC [Concomitant]
  5. DELIX 5 PLUS (RAMIPRIL / HYDROCHLOROTHIAZIDE) [Concomitant]
  6. ZOLPLICON (ZOPICLONE) [Concomitant]
  7. INSUMAN COMB (HUMAN MIXTARD) [Concomitant]

REACTIONS (2)
  - ATRIOVENTRICULAR BLOCK COMPLETE [None]
  - ATRIOVENTRICULAR BLOCK SECOND DEGREE [None]
